FAERS Safety Report 22799196 (Version 2)
Quarter: 2023Q4

REPORT INFORMATION
  Report Type: Spontaneous
  Country: ES (occurrence: ES)
  Receive Date: 20230808
  Receipt Date: 20231106
  Transmission Date: 20240110
  Serious: Yes (Hospitalization, Other)
  Sender: FDA-Public Use
  Company Number: US-Hikma Pharmaceuticals-US-H14001-23-00457

PATIENT
  Age: 65 Year
  Sex: Male

DRUGS (82)
  1. BEVACIZUMAB [Suspect]
     Active Substance: BEVACIZUMAB
     Indication: Colorectal cancer
     Dosage: UNK
     Dates: start: 20220930
  2. BEVACIZUMAB [Suspect]
     Active Substance: BEVACIZUMAB
     Dosage: 325 MG
     Route: 042
     Dates: start: 20230309
  3. BEVACIZUMAB [Suspect]
     Active Substance: BEVACIZUMAB
     Dosage: 325 MG
     Route: 042
     Dates: start: 20230323
  4. BEVACIZUMAB [Suspect]
     Active Substance: BEVACIZUMAB
     Dosage: 325 MG
     Route: 042
     Dates: start: 20230410
  5. BEVACIZUMAB [Suspect]
     Active Substance: BEVACIZUMAB
     Dosage: 325 MG
     Route: 042
     Dates: start: 20230424
  6. BEVACIZUMAB [Suspect]
     Active Substance: BEVACIZUMAB
     Dosage: 325 MG
     Route: 042
     Dates: start: 20230508
  7. BEVACIZUMAB [Suspect]
     Active Substance: BEVACIZUMAB
     Dosage: 325 MG
     Route: 042
     Dates: start: 20230522
  8. BEVACIZUMAB [Suspect]
     Active Substance: BEVACIZUMAB
     Dosage: 325 MG
     Route: 042
     Dates: start: 20230606
  9. BEVACIZUMAB [Suspect]
     Active Substance: BEVACIZUMAB
     Dosage: 325 MG
     Dates: start: 20230627
  10. BEVACIZUMAB [Suspect]
     Active Substance: BEVACIZUMAB
     Dosage: 325 MG
     Dates: start: 20230711
  11. BEVACIZUMAB [Suspect]
     Active Substance: BEVACIZUMAB
     Dosage: 325 MG
     Dates: start: 20230808
  12. LEUCOVORIN CALCIUM [Suspect]
     Active Substance: LEUCOVORIN CALCIUM
     Indication: Colorectal cancer
     Dosage: 400 MG
     Dates: start: 20220902
  13. LEUCOVORIN CALCIUM [Suspect]
     Active Substance: LEUCOVORIN CALCIUM
     Dosage: 400 MG
     Dates: start: 20220930
  14. LEUCOVORIN CALCIUM [Suspect]
     Active Substance: LEUCOVORIN CALCIUM
     Dosage: 99 MG
     Dates: start: 20230223
  15. LEUCOVORIN CALCIUM [Suspect]
     Active Substance: LEUCOVORIN CALCIUM
     Dosage: 99 MG
     Dates: start: 20230309
  16. LEUCOVORIN CALCIUM [Suspect]
     Active Substance: LEUCOVORIN CALCIUM
     Dosage: 99 MG
     Dates: start: 20230323
  17. LEUCOVORIN CALCIUM [Suspect]
     Active Substance: LEUCOVORIN CALCIUM
     Dosage: 99 MG
     Dates: start: 20230410
  18. LEUCOVORIN CALCIUM [Suspect]
     Active Substance: LEUCOVORIN CALCIUM
     Dosage: 99 MG
     Dates: start: 20230424
  19. LEUCOVORIN CALCIUM [Suspect]
     Active Substance: LEUCOVORIN CALCIUM
     Dosage: 99 MG
     Dates: start: 20230508
  20. LEUCOVORIN CALCIUM [Suspect]
     Active Substance: LEUCOVORIN CALCIUM
     Dosage: 99 MG
     Dates: start: 20230522
  21. LEUCOVORIN CALCIUM [Suspect]
     Active Substance: LEUCOVORIN CALCIUM
     Dosage: 99 MG
     Dates: start: 20230606
  22. LEUCOVORIN CALCIUM [Suspect]
     Active Substance: LEUCOVORIN CALCIUM
     Dosage: 400 MG
     Dates: start: 20230627
  23. LEUCOVORIN CALCIUM [Suspect]
     Active Substance: LEUCOVORIN CALCIUM
     Dosage: 99 MG
     Dates: start: 20230808
  24. OXALIPLATIN [Suspect]
     Active Substance: OXALIPLATIN
     Indication: Colorectal cancer
     Dosage: UNKNOWN
     Route: 065
  25. OXALIPLATIN [Suspect]
     Active Substance: OXALIPLATIN
     Dosage: 146 MG
     Route: 042
     Dates: start: 20220902
  26. OXALIPLATIN [Suspect]
     Active Substance: OXALIPLATIN
     Dosage: 112 MG
     Route: 042
     Dates: start: 20220930
  27. FLUOROURACIL [Suspect]
     Active Substance: FLUOROURACIL
     Indication: Colorectal cancer
     Dosage: 4128 MG
     Route: 042
     Dates: start: 20220902
  28. FLUOROURACIL [Suspect]
     Active Substance: FLUOROURACIL
     Dosage: 688 MG
     Route: 042
     Dates: start: 20220902
  29. FLUOROURACIL [Suspect]
     Active Substance: FLUOROURACIL
     Dosage: 3302 MG
     Route: 042
     Dates: start: 20220930
  30. FLUOROURACIL [Suspect]
     Active Substance: FLUOROURACIL
     Dosage: 55 MG
     Route: 042
     Dates: start: 20220930
  31. FLUOROURACIL [Suspect]
     Active Substance: FLUOROURACIL
     Dosage: 550 MG
     Route: 042
     Dates: start: 20230223
  32. FLUOROURACIL [Suspect]
     Active Substance: FLUOROURACIL
     Dosage: 3302 MG
     Route: 042
     Dates: start: 20230223
  33. FLUOROURACIL [Suspect]
     Active Substance: FLUOROURACIL
     Dosage: 550 MG
     Route: 042
     Dates: start: 20230309
  34. FLUOROURACIL [Suspect]
     Active Substance: FLUOROURACIL
     Dosage: 3302 MG
     Route: 042
     Dates: start: 20230309
  35. FLUOROURACIL [Suspect]
     Active Substance: FLUOROURACIL
     Dosage: 550 MG
     Route: 042
     Dates: start: 20230323
  36. FLUOROURACIL [Suspect]
     Active Substance: FLUOROURACIL
     Dosage: 3302 MG
     Route: 042
     Dates: start: 20230323
  37. FLUOROURACIL [Suspect]
     Active Substance: FLUOROURACIL
     Dosage: 3302 MG
     Route: 042
     Dates: start: 20230410
  38. FLUOROURACIL [Suspect]
     Active Substance: FLUOROURACIL
     Dosage: 550 MG
     Route: 042
     Dates: start: 20230410
  39. FLUOROURACIL [Suspect]
     Active Substance: FLUOROURACIL
     Dosage: 3302 MG
     Route: 042
     Dates: start: 20230424
  40. FLUOROURACIL [Suspect]
     Active Substance: FLUOROURACIL
     Dosage: 550 MG
     Route: 042
     Dates: start: 20230424
  41. FLUOROURACIL [Suspect]
     Active Substance: FLUOROURACIL
     Dosage: 550 MG
     Route: 042
     Dates: start: 20230508
  42. FLUOROURACIL [Suspect]
     Active Substance: FLUOROURACIL
     Dosage: 3302 MG
     Route: 042
     Dates: start: 20230508
  43. FLUOROURACIL [Suspect]
     Active Substance: FLUOROURACIL
     Dosage: 550 MG
     Route: 042
     Dates: start: 20230522
  44. FLUOROURACIL [Suspect]
     Active Substance: FLUOROURACIL
     Dosage: 3302 MG
     Route: 042
     Dates: start: 20230522
  45. FLUOROURACIL [Suspect]
     Active Substance: FLUOROURACIL
     Dosage: 3302 MG
     Route: 042
     Dates: start: 20230606
  46. FLUOROURACIL [Suspect]
     Active Substance: FLUOROURACIL
     Dosage: 550 MG
     Route: 042
     Dates: start: 20230606
  47. FLUOROURACIL [Suspect]
     Active Substance: FLUOROURACIL
     Dosage: 3302 MG
     Dates: start: 20230627
  48. FLUOROURACIL [Suspect]
     Active Substance: FLUOROURACIL
     Dosage: 550 MG
     Dates: start: 20230627
  49. FLUOROURACIL [Suspect]
     Active Substance: FLUOROURACIL
     Dosage: 3302 MG
     Dates: start: 20230711
  50. FLUOROURACIL [Suspect]
     Active Substance: FLUOROURACIL
     Dosage: 550 MG
     Dates: start: 20230711
  51. FLUOROURACIL [Suspect]
     Active Substance: FLUOROURACIL
     Dosage: 3187 MG
     Dates: start: 20230724
  52. FLUOROURACIL [Suspect]
     Active Substance: FLUOROURACIL
     Dosage: 531 MG
     Dates: start: 20230724
  53. FLUOROURACIL [Suspect]
     Active Substance: FLUOROURACIL
     Dosage: 3187 MG
     Dates: start: 20230808
  54. FLUOROURACIL [Suspect]
     Active Substance: FLUOROURACIL
     Dosage: 531 MG
     Dates: start: 20230808
  55. ETRUMADENANT [Suspect]
     Active Substance: ETRUMADENANT
     Indication: Colorectal cancer
     Dosage: 450 MG
     Dates: start: 20220905
  56. ETRUMADENANT [Suspect]
     Active Substance: ETRUMADENANT
     Dosage: 150 MG
     Dates: start: 20221027
  57. ETRUMADENANT [Suspect]
     Active Substance: ETRUMADENANT
     Dosage: 450 MG
     Dates: start: 20221027
  58. ETRUMADENANT [Suspect]
     Active Substance: ETRUMADENANT
     Dosage: 150 MG
     Dates: start: 20230309, end: 20230406
  59. ETRUMADENANT [Suspect]
     Active Substance: ETRUMADENANT
     Dosage: 150 MG
     Dates: start: 20230508, end: 20230604
  60. LEUCOVORIN CALCIUM [Suspect]
     Active Substance: LEUCOVORIN CALCIUM
     Indication: Colorectal cancer
     Dosage: 400 MG
     Route: 042
     Dates: start: 20220902
  61. LEUCOVORIN CALCIUM [Suspect]
     Active Substance: LEUCOVORIN CALCIUM
     Dosage: 400 MG
     Route: 042
     Dates: start: 20220930
  62. LEUCOVORIN CALCIUM [Suspect]
     Active Substance: LEUCOVORIN CALCIUM
     Dosage: 99 MG
     Route: 042
     Dates: start: 20230223
  63. LEUCOVORIN CALCIUM [Suspect]
     Active Substance: LEUCOVORIN CALCIUM
     Dosage: 99 MG
     Route: 042
     Dates: start: 20230309
  64. LEUCOVORIN CALCIUM [Suspect]
     Active Substance: LEUCOVORIN CALCIUM
     Dosage: 99 MG
     Route: 042
     Dates: start: 20230323
  65. LEUCOVORIN CALCIUM [Suspect]
     Active Substance: LEUCOVORIN CALCIUM
     Dosage: 99 MG
     Route: 042
     Dates: start: 20230410
  66. LEUCOVORIN CALCIUM [Suspect]
     Active Substance: LEUCOVORIN CALCIUM
     Dosage: 99 MG
     Route: 042
     Dates: start: 20230424
  67. LEUCOVORIN CALCIUM [Suspect]
     Active Substance: LEUCOVORIN CALCIUM
     Dosage: 99 MG
     Route: 042
     Dates: start: 20230508
  68. LEUCOVORIN CALCIUM [Suspect]
     Active Substance: LEUCOVORIN CALCIUM
     Dosage: 99 MG
     Route: 042
     Dates: start: 20230522
  69. LEUCOVORIN CALCIUM [Suspect]
     Active Substance: LEUCOVORIN CALCIUM
     Dosage: 99 MG
     Route: 042
     Dates: start: 20230606
  70. ZIMBERELIMAB [Suspect]
     Active Substance: ZIMBERELIMAB
     Indication: Colorectal cancer
     Dosage: 400 MG
     Route: 042
     Dates: start: 20220902
  71. ZIMBERELIMAB [Suspect]
     Active Substance: ZIMBERELIMAB
     Dosage: 400 MG
     Route: 042
     Dates: start: 20220930
  72. ZIMBERELIMAB [Suspect]
     Active Substance: ZIMBERELIMAB
     Dosage: 480 MG
     Route: 042
     Dates: start: 20230410
  73. ZIMBERELIMAB [Suspect]
     Active Substance: ZIMBERELIMAB
     Dosage: 480 MG
     Route: 042
     Dates: start: 20230508
  74. ZIMBERELIMAB [Suspect]
     Active Substance: ZIMBERELIMAB
     Dosage: 480 MG
     Route: 042
     Dates: start: 20230606
  75. ZIMBERELIMAB [Suspect]
     Active Substance: ZIMBERELIMAB
     Dosage: 480 MG
     Dates: start: 20230711
  76. ZIMBERELIMAB [Suspect]
     Active Substance: ZIMBERELIMAB
     Dosage: 480 MG
     Dates: start: 20230808
  77. POLYETHYLENE GLYCOLS [Concomitant]
     Active Substance: POLYETHYLENE GLYCOLS
     Dosage: UNK
     Dates: start: 20220909
  78. CHLORTHALIDONE [Concomitant]
     Active Substance: CHLORTHALIDONE
     Dosage: UNK
     Dates: start: 20220909
  79. CAPTOPIRIL [Concomitant]
     Dosage: UNK
     Dates: start: 20230123
  80. ATENOLOL [Concomitant]
     Active Substance: ATENOLOL
     Dosage: UNK
     Dates: start: 20220909
  81. ENALAPRIL [Concomitant]
     Active Substance: ENALAPRIL
     Dosage: UNK
     Dates: start: 20220909
  82. OMEPRAZOLE [Concomitant]
     Active Substance: OMEPRAZOLE
     Dosage: UNK
     Dates: start: 20221222

REACTIONS (8)
  - Neutropenia [Recovered/Resolved]
  - Respiratory tract infection [Unknown]
  - Oropharyngeal pain [Unknown]
  - Respiratory syncytial virus test positive [Unknown]
  - Pyrexia [Unknown]
  - Rash [Unknown]
  - Asthenia [Unknown]
  - Abdominal hernia [Recovered/Resolved]

NARRATIVE: CASE EVENT DATE: 20221028
